FAERS Safety Report 8259258-3 (Version None)
Quarter: 2012Q2

REPORT INFORMATION
  Report Type: 
  Country: None (occurrence: None)
  Receive Date: 20120404
  Receipt Date: 20120326
  Transmission Date: 20120825
  Serious: Yes (Other)
  Sender: FDA-Public Use
  Company Number: US-ASTRAZENECA-2012SE11332

PATIENT
  Age: 60 Year
  Sex: Female

DRUGS (3)
  1. CRESTOR [Suspect]
     Route: 048
  2. NORCO [Concomitant]
     Indication: PAIN
     Dosage: 5/325,ONE TO TWO  EVERY SIX HOURS AS REQUIRED
     Route: 048
     Dates: start: 20111220
  3. ULTRAM [Concomitant]
     Indication: PAIN
     Dosage: ONE TO TWO EVERY SIX HOURS AS REQUIRED
     Route: 048
     Dates: start: 20120103, end: 20120210

REACTIONS (1)
  - RADIUS FRACTURE [None]
